FAERS Safety Report 16135548 (Version 1)
Quarter: 2019Q1

REPORT INFORMATION
  Report Type: Spontaneous
  Country: RO (occurrence: RO)
  Receive Date: 20190329
  Receipt Date: 20190329
  Transmission Date: 20190418
  Serious: Yes (Life-Threatening)
  Sender: FDA-Public Use
  Company Number: RO-009507513-1903ROM011977

PATIENT
  Age: 62 Year
  Sex: Female

DRUGS (5)
  1. PRESTARIUM (PERINDOPRIL ARGININE) [Concomitant]
     Active Substance: PERINDOPRIL ARGININE
     Indication: HYPERTENSION
     Dosage: 5 MG, DAILY
     Route: 048
  2. NITROMINT [Concomitant]
     Active Substance: NITROGLYCERIN
     Indication: HYPERTENSION
     Dosage: 5.2 MG, DAILY
     Route: 048
  3. CONCOR [Concomitant]
     Active Substance: BISOPROLOL FUMARATE
     Indication: HYPERTENSION
     Dosage: 5 MG,  DAILY
     Route: 048
  4. PREDUCTAL [Concomitant]
     Active Substance: TRIMETAZIDINE DIHYDROCHLORIDE
     Indication: HYPERTENSION
     Dosage: 70 MG, DAILY
     Route: 048
  5. ZEPATIER [Suspect]
     Active Substance: ELBASVIR\GRAZOPREVIR
     Indication: CHRONIC HEPATITIS C
     Dosage: ONCE DAILY
     Route: 048
     Dates: start: 20190108, end: 20190306

REACTIONS (5)
  - Insomnia [Unknown]
  - Weight decreased [Unknown]
  - Night sweats [Unknown]
  - Dizziness [Unknown]
  - Decreased appetite [Unknown]

NARRATIVE: CASE EVENT DATE: 201902
